FAERS Safety Report 16131948 (Version 2)
Quarter: 2019Q2

REPORT INFORMATION
  Report Type: Spontaneous
  Country: US (occurrence: US)
  Receive Date: 20190329
  Receipt Date: 20190617
  Transmission Date: 20190711
  Serious: No
  Sender: FDA-Public Use
  Company Number: US-BIOGEN-2019BI00716343

PATIENT
  Sex: Female

DRUGS (1)
  1. AVONEX [Suspect]
     Active Substance: INTERFERON BETA-1A
     Indication: MULTIPLE SCLEROSIS
     Route: 065
     Dates: start: 20010901, end: 20190310

REACTIONS (10)
  - Vertigo [Unknown]
  - Paraesthesia [Unknown]
  - Fatigue [Unknown]
  - Fall [Recovered/Resolved]
  - Throat tightness [Unknown]
  - Hypoaesthesia oral [Unknown]
  - Vision blurred [Unknown]
  - Eye pain [Unknown]
  - Dysphagia [Unknown]
  - Memory impairment [Unknown]
